FAERS Safety Report 10618972 (Version 1)
Quarter: 2014Q4

REPORT INFORMATION
  Report Type: Spontaneous
  Country: ES (occurrence: None)
  Receive Date: 20141126
  Receipt Date: 20141126
  Transmission Date: 20150529
  Serious: Yes (Other)
  Sender: FDA-Public Use
  Company Number: FK201405449

PATIENT
  Sex: Female

DRUGS (1)
  1. DEXAMETHASONE. [Suspect]
     Active Substance: DEXAMETHASONE
     Indication: FOETAL CHROMOSOME ABNORMALITY
     Dosage: 4+5 WEEKS GESTATION
     Route: 064

REACTIONS (4)
  - Premature baby [None]
  - Foetal exposure during pregnancy [None]
  - Foetal growth restriction [None]
  - Adrenogenital syndrome [None]
